FAERS Safety Report 7068556-0 (Version None)
Quarter: 2010Q4

REPORT INFORMATION
  Report Type: 
  Country: None (occurrence: None)
  Receive Date: 20101028
  Receipt Date: 20101006
  Transmission Date: 20110411
  Serious: Yes (Other)
  Sender: FDA-Public Use
  Company Number: PHHY2010AU66810

PATIENT
  Sex: Female

DRUGS (1)
  1. SANDOSTATIN [Suspect]
     Indication: GASTROINTESTINAL CARCINOMA
     Dosage: 50 MCG DAILY
     Route: 030
     Dates: start: 20101001, end: 20101004

REACTIONS (2)
  - PARAESTHESIA ORAL [None]
  - THROAT TIGHTNESS [None]
